FAERS Safety Report 5106109-1 (Version None)
Quarter: 2006Q3

REPORT INFORMATION
  Report Type: 
  Country: None (occurrence: None)
  Receive Date: 20060912
  Receipt Date: 20060905
  Transmission Date: 20061208
  Serious: Yes (Other)
  Sender: FDA-Public Use
  Company Number: HQWYE210317JUL04

PATIENT
  Age: 59 Year
  Sex: Female
  Weight: 81.72 kg

DRUGS (4)
  1. PREMARIN [Suspect]
     Indication: HOT FLUSH
     Dosage: 0.625MG, ORAL
     Route: 048
     Dates: start: 19920201, end: 19940101
  2. OGEN [Suspect]
     Indication: HOT FLUSH
     Dosage: 0.625MG
     Dates: start: 19940101, end: 20000601
  3. PROVERA [Suspect]
     Indication: CARDIAC DISORDER
     Dosage: 2.5 MG, ORAL
     Route: 048
     Dates: start: 19940101, end: 20000101
  4. PROVERA [Suspect]
     Indication: PROPHYLAXIS
     Dosage: 2.5 MG, ORAL
     Route: 048
     Dates: start: 19940101, end: 20000101

REACTIONS (27)
  - ARTHRALGIA [None]
  - BREAST CANCER METASTATIC [None]
  - BREAST CANCER STAGE III [None]
  - CALCULUS URETERIC [None]
  - CHEST X-RAY ABNORMAL [None]
  - CHOLELITHIASIS [None]
  - DISEASE PROGRESSION [None]
  - FAT NECROSIS [None]
  - FEMORAL NECK FRACTURE [None]
  - HEPATIC CYST [None]
  - HEPATIC LESION [None]
  - HEPATIC STEATOSIS [None]
  - HIP FRACTURE [None]
  - HYDRONEPHROSIS [None]
  - LUNG NEOPLASM [None]
  - METASTASES TO BONE [None]
  - METASTASES TO LIVER [None]
  - METASTASES TO LYMPH NODES [None]
  - OESTROGEN RECEPTOR ASSAY POSITIVE [None]
  - OSTEOARTHRITIS [None]
  - PATHOLOGICAL FRACTURE [None]
  - PROGESTERONE RECEPTOR ASSAY POSITIVE [None]
  - PULMONARY GRANULOMA [None]
  - RENAL CYST [None]
  - SMEAR CERVIX ABNORMAL [None]
  - SPINAL OSTEOARTHRITIS [None]
  - TUMOUR NECROSIS [None]
